FAERS Safety Report 5148755-5 (Version None)
Quarter: 2006Q4

REPORT INFORMATION
  Report Type: 
  Country: None (occurrence: None)
  Receive Date: 20061107
  Receipt Date: 20061025
  Transmission Date: 20070319
  Serious: Yes (Hospitalization)
  Sender: FDA-Public Use
  Company Number: 231806

PATIENT
  Age: 61 Year
  Sex: Male
  Weight: 104.3 kg

DRUGS (1)
  1. RITUXAN (RITUXIMAB) CON FOR SOLUTION FOR INFUSION [Suspect]
     Indication: RHEUMATOID ARTHRITIS
     Dates: start: 20060905

REACTIONS (4)
  - ABASIA [None]
  - DYSPNOEA [None]
  - PULMONARY THROMBOSIS [None]
  - WHEEZING [None]
